FAERS Safety Report 7699144-0 (Version None)
Quarter: 2011Q3

REPORT INFORMATION
  Report Type: 
  Country: None (occurrence: None)
  Receive Date: 20110819
  Receipt Date: 20110809
  Transmission Date: 20111222
  Serious: Yes (Other)
  Sender: FDA-Public Use
  Company Number: BR-BAYER-2011-013975

PATIENT
  Age: 49 Year
  Sex: Female

DRUGS (7)
  1. BETASERON [Suspect]
     Indication: RELAPSING-REMITTING MULTIPLE SCLEROSIS
     Dosage: 1 ML, QOD
     Route: 058
     Dates: start: 20110103, end: 20110801
  2. CITALOPRAM [Concomitant]
     Dosage: 40 MG, QD
     Route: 048
     Dates: start: 20100101, end: 20100101
  3. CITALOPRAM [Concomitant]
     Indication: BIPOLAR DISORDER
     Dosage: 40 MG, QD
     Route: 048
     Dates: start: 20100101
  4. BETASERON [Suspect]
  5. CITALOPRAM [Concomitant]
     Dosage: 10 MG, QD
     Route: 048
     Dates: end: 20100101
  6. CITALOPRAM [Concomitant]
     Dosage: 20 MG, QD
     Dates: start: 20100101
  7. FLANAX [Concomitant]
     Indication: PROPHYLAXIS
     Dosage: 1 DF, QOD
     Route: 048
     Dates: start: 20110208

REACTIONS (20)
  - INJECTION SITE ERYTHEMA [None]
  - FATIGUE [None]
  - INJECTION SITE NECROSIS [None]
  - INJECTION SITE INFLAMMATION [None]
  - INJECTION SITE MASS [None]
  - INJECTION SITE RASH [None]
  - HYPOAESTHESIA [None]
  - WOUND COMPLICATION [None]
  - INJECTION SITE PAIN [None]
  - INFLUENZA LIKE ILLNESS [None]
  - INJECTION SITE HAEMORRHAGE [None]
  - INJECTION SITE WARMTH [None]
  - INJECTION SITE ULCER [None]
  - PYREXIA [None]
  - FEELING HOT [None]
  - INJECTION SITE DISCOLOURATION [None]
  - PAIN [None]
  - ARTHRALGIA [None]
  - INJECTION SITE NODULE [None]
  - COORDINATION ABNORMAL [None]
